FAERS Safety Report 13595765 (Version 1)
Quarter: 2017Q2

REPORT INFORMATION
  Report Type: Spontaneous
  Country: US (occurrence: US)
  Receive Date: 20170531
  Receipt Date: 20170531
  Transmission Date: 20170830
  Serious: No
  Sender: FDA-Public Use
  Company Number: US-JNJFOC-20170305106

PATIENT
  Age: 90 Year
  Sex: Female
  Weight: 43.09 kg

DRUGS (1)
  1. TYLENOL EXTRA STRENGTH [Suspect]
     Active Substance: ACETAMINOPHEN
     Indication: BACK PAIN
     Dosage: 2 PILLS ONCE IN THE MORNING
     Route: 048
     Dates: end: 20170302

REACTIONS (1)
  - Expired product administered [Unknown]
